FAERS Safety Report 18758850 (Version 1)
Quarter: 2021Q1

REPORT INFORMATION
  Report Type: Report from Study
  Country: FR (occurrence: FR)
  Receive Date: 20210120
  Receipt Date: 20210120
  Transmission Date: 20210419
  Serious: Yes (Hospitalization)
  Sender: FDA-Public Use
  Company Number: FR-JNJFOC-20210114718

PATIENT
  Age: 8 Decade
  Sex: Male
  Weight: 70 kg

DRUGS (35)
  1. HUMIRA [Concomitant]
     Active Substance: ADALIMUMAB
     Route: 065
     Dates: start: 20140523, end: 20140601
  2. HUMIRA [Concomitant]
     Active Substance: ADALIMUMAB
     Route: 065
     Dates: start: 20200306, end: 20200405
  3. BENZYL ALCOHOL [Concomitant]
     Active Substance: BENZYL ALCOHOL
     Route: 065
  4. CEFUROXIME. [Concomitant]
     Active Substance: CEFUROXIME
     Route: 065
  5. ZINNAT [CEFUROXIME SODIUM] [Concomitant]
     Active Substance: CEFUROXIME SODIUM
     Route: 065
     Dates: start: 201509, end: 201509
  6. HUMIRA [Concomitant]
     Active Substance: ADALIMUMAB
     Route: 065
     Dates: start: 201504, end: 20150923
  7. DAIVOBET [BETAMETHASONE;CALCIPOTRIOL] [Concomitant]
     Route: 065
     Dates: end: 20150206
  8. STELARA [Suspect]
     Active Substance: USTEKINUMAB
     Route: 058
     Dates: start: 20160901
  9. ENBREL [Concomitant]
     Active Substance: ETANERCEPT
     Route: 065
     Dates: start: 20151007, end: 20160520
  10. PLAVIX [Concomitant]
     Active Substance: CLOPIDOGREL BISULFATE
     Route: 065
     Dates: end: 20200306
  11. HUMIRA [Concomitant]
     Active Substance: ADALIMUMAB
     Route: 065
     Dates: start: 20200609, end: 20200918
  12. COSENTYX [Concomitant]
     Active Substance: SECUKINUMAB
     Route: 065
     Dates: end: 201710
  13. AMOXICILLINE [AMOXICILLIN] [Concomitant]
     Active Substance: AMOXICILLIN
     Route: 065
     Dates: start: 20160307
  14. BETAMETHASONE DIPROPIONATE. [Concomitant]
     Active Substance: BETAMETHASONE DIPROPIONATE
     Route: 065
  15. TAMSULOSIN HYDROCHLORIDE. [Concomitant]
     Active Substance: TAMSULOSIN HYDROCHLORIDE
     Route: 065
  16. ACETYLSALICYLIC ACID [Concomitant]
     Active Substance: ASPIRIN
     Route: 065
  17. CLOPIDOGREL [Concomitant]
     Active Substance: CLOPIDOGREL BISULFATE
     Route: 065
     Dates: start: 20160521
  18. DILTIAZEM HYDROCHLORIDE. [Concomitant]
     Active Substance: DILTIAZEM HYDROCHLORIDE
     Route: 065
     Dates: start: 20160521
  19. PRISTINAMYCINE [Concomitant]
     Active Substance: PRISTINAMYCIN
     Route: 065
     Dates: start: 20160201, end: 20160209
  20. SERENOA REPENS EXTRACT [Concomitant]
     Active Substance: HERBALS\SAW PALMETTO
     Route: 065
  21. TRINITRINE [Concomitant]
     Active Substance: NITROGLYCERIN
     Route: 065
     Dates: start: 20160521
  22. ESOMEPRAZOLE. [Concomitant]
     Active Substance: ESOMEPRAZOLE MAGNESIUM
     Route: 065
     Dates: start: 20160521, end: 20190621
  23. LOCOID [Concomitant]
     Active Substance: HYDROCORTISONE BUTYRATE
     Route: 065
     Dates: end: 20140829
  24. INEGY [Concomitant]
     Active Substance: EZETIMIBE\SIMVASTATIN
     Route: 065
     Dates: end: 20200306
  25. HUMIRA [Concomitant]
     Active Substance: ADALIMUMAB
     Route: 065
     Dates: start: 20180126, end: 20190723
  26. HUMIRA [Concomitant]
     Active Substance: ADALIMUMAB
     Route: 065
     Dates: start: 20191013, end: 20200306
  27. OTEZLA [Concomitant]
     Active Substance: APREMILAST
     Route: 065
     Dates: start: 201710, end: 20180126
  28. TRIATEC [RAMIPRIL] [Concomitant]
     Active Substance: RAMIPRIL
     Route: 065
     Dates: end: 20180126
  29. STELARA [Suspect]
     Active Substance: USTEKINUMAB
     Indication: PSORIASIS
     Route: 058
     Dates: start: 20160801, end: 20160901
  30. METHOTREXATE. [Concomitant]
     Active Substance: METHOTREXATE
     Route: 065
     Dates: start: 20140104, end: 20140523
  31. HUMIRA [Concomitant]
     Active Substance: ADALIMUMAB
     Route: 065
     Dates: start: 20140608, end: 20150206
  32. HYDROCORTISONE 17?BUTYRATE 21?PROPIONATE [Concomitant]
     Route: 065
  33. RAMIPRIL. [Concomitant]
     Active Substance: RAMIPRIL
     Route: 065
     Dates: start: 20160521, end: 20200306
  34. SOLUPRED [PREDNISOLONE] [Concomitant]
     Active Substance: PREDNISOLONE
     Route: 065
     Dates: end: 20200604
  35. BISEPTINE [Concomitant]
     Active Substance: BENZALKONIUM CHLORIDE\BENZYL ALCOHOL\CHLORHEXIDINE
     Route: 065
     Dates: end: 20140829

REACTIONS (3)
  - Atrial fibrillation [Recovered/Resolved]
  - Cerebral infarction [Recovered/Resolved]
  - Arterial thrombosis [Recovered/Resolved]

NARRATIVE: CASE EVENT DATE: 20190526
